FAERS Safety Report 5259151-4 (Version None)
Quarter: 2007Q1

REPORT INFORMATION
  Report Type: 
  Country: None (occurrence: None)
  Receive Date: 20070308
  Receipt Date: 20070227
  Transmission Date: 20070707
  Serious: Yes (Hospitalization, Other)
  Sender: FDA-Public Use
  Company Number: US-ELI_LILLY_AND_COMPANY-US200702005469

PATIENT
  Age: 80 Year
  Sex: Female

DRUGS (1)
  1. FORTEO [Suspect]
     Indication: OSTEOPOROSIS
     Dosage: UNK D/F, UNK
     Dates: start: 20050701

REACTIONS (7)
  - COUGH [None]
  - DYSPNOEA [None]
  - FALL [None]
  - PELVIC FRACTURE [None]
  - PNEUMONIA [None]
  - SPUTUM ABNORMAL [None]
  - TREMOR [None]
